FAERS Safety Report 23656998 (Version 1)
Quarter: 2024Q1

REPORT INFORMATION
  Report Type: Spontaneous
  Country: JP (occurrence: JP)
  Receive Date: 20240321
  Receipt Date: 20240321
  Transmission Date: 20240410
  Serious: Yes (Death, Other)
  Sender: FDA-Public Use
  Company Number: JP-ASTELLAS-2024JP001606

PATIENT
  Age: 8 Decade
  Sex: Female

DRUGS (2)
  1. XOSPATA [Suspect]
     Active Substance: GILTERITINIB
     Indication: Acute myeloid leukaemia
     Route: 048
     Dates: start: 202301, end: 202402
  2. XOSPATA [Suspect]
     Active Substance: GILTERITINIB
     Dosage: UNK UNK, UNKNOWN FREQ.
     Route: 048
     Dates: start: 202402, end: 202402

REACTIONS (3)
  - Pneumonia [Fatal]
  - Differentiation syndrome [Recovering/Resolving]
  - Infection [Recovered/Resolved]

NARRATIVE: CASE EVENT DATE: 20240213
